FAERS Safety Report 8062201-3 (Version None)
Quarter: 2012Q1

REPORT INFORMATION
  Report Type: 
  Country: None (occurrence: None)
  Receive Date: 20120123
  Receipt Date: 20120116
  Transmission Date: 20120608
  Serious: Yes (Other)
  Sender: FDA-Public Use
  Company Number: FR-BRISTOL-MYERS SQUIBB COMPANY-16270944

PATIENT
  Age: 38 Year
  Sex: Male
  Weight: 87 kg

DRUGS (4)
  1. ABILIFY [Suspect]
     Indication: SCHIZOPHRENIA
     Route: 048
     Dates: start: 20100301
  2. NOZINAN [Concomitant]
     Dosage: NOZINAN 100 MG TABS
     Route: 048
  3. PRAZEPAM [Concomitant]
     Dosage: LYSANXIA 10MG TABS
     Route: 048
  4. ESCITALOPRAM OXALATE [Concomitant]
     Indication: SCHIZOPHRENIA
     Dosage: TAB
     Route: 048

REACTIONS (3)
  - DELUSION [None]
  - DEPRESSION [None]
  - HEPATIC ENZYME INCREASED [None]
